FAERS Safety Report 23082442 (Version 2)
Quarter: 2023Q4

REPORT INFORMATION
  Report Type: Spontaneous
  Country: US (occurrence: US)
  Receive Date: 20231019
  Receipt Date: 20231215
  Transmission Date: 20240110
  Serious: Yes (Other)
  Sender: FDA-Public Use
  Company Number: US-JNJFOC-20231031378

PATIENT
  Sex: Male

DRUGS (5)
  1. TYLENOL EXTRA STRENGTH [Suspect]
     Active Substance: ACETAMINOPHEN
     Indication: Headache
     Dosage: TWO TO THREE TIMES PER WEEK, FIRST, SECOND AND THIRD TRIMESTER
     Route: 064
     Dates: start: 200405, end: 200410
  2. TYLENOL EXTRA STRENGTH [Suspect]
     Active Substance: ACETAMINOPHEN
     Indication: Back pain
  3. TYLENOL EXTRA STRENGTH [Suspect]
     Active Substance: ACETAMINOPHEN
     Indication: Pain
  4. PANADOL [Concomitant]
     Active Substance: ACETAMINOPHEN
     Indication: Headache
     Route: 064
  5. PANADOL [Concomitant]
     Active Substance: ACETAMINOPHEN
     Indication: Back pain

REACTIONS (2)
  - Autism spectrum disorder [Unknown]
  - Foetal exposure during pregnancy [Unknown]

NARRATIVE: CASE EVENT DATE: 20040101
